FAERS Safety Report 24383555 (Version 1)
Quarter: 2024Q4

REPORT INFORMATION
  Report Type: Spontaneous
  Country: US (occurrence: None)
  Receive Date: 20241001
  Receipt Date: 20241001
  Transmission Date: 20250114
  Serious: Yes (Death)
  Sender: Public
  Company Number: None

PATIENT
  Sex: Female
  Weight: 97.2 kg

DRUGS (3)
  1. FLUOROURACIL [Suspect]
     Active Substance: FLUOROURACIL
     Dates: start: 20240618, end: 20240620
  2. LEUCOVORIN CALCIUM [Concomitant]
     Active Substance: LEUCOVORIN CALCIUM
  3. ELOXATIN [Concomitant]
     Active Substance: OXALIPLATIN

REACTIONS (1)
  - Disease progression [None]

NARRATIVE: CASE EVENT DATE: 20240802
